FAERS Safety Report 8405301-8 (Version None)
Quarter: 2012Q2

REPORT INFORMATION
  Report Type: 
  Country: None (occurrence: None)
  Receive Date: 20120604
  Receipt Date: 20120522
  Transmission Date: 20120825
  Serious: Yes (Other)
  Sender: FDA-Public Use
  Company Number: GB-AMGEN-GBRSP2012019733

PATIENT
  Age: 77 Year
  Sex: Male
  Weight: 80 kg

DRUGS (6)
  1. AMLODIPINE [Concomitant]
     Dosage: 5 MG, 1X/DAY
     Route: 048
  2. MONOMAX [Concomitant]
     Dosage: 60 MG, 1X/DAY
     Route: 048
  3. VALSARTAN [Concomitant]
     Dosage: UNK
  4. ATORVASTATIN CALCIUM [Concomitant]
     Dosage: 20 MG, 1X/DAY
     Route: 048
  5. ENBREL [Suspect]
     Indication: RHEUMATOID ARTHRITIS
     Dosage: 50 MG, WEEKLY
     Route: 058
     Dates: start: 20070101, end: 20120301
  6. TEMAZEPAM [Concomitant]
     Dosage: 10 MG, 1X/DAY
     Route: 048

REACTIONS (4)
  - TINNITUS [None]
  - INSOMNIA [None]
  - DIZZINESS [None]
  - VASCULITIC RASH [None]
